FAERS Safety Report 5726104-9 (Version None)
Quarter: 2008Q2

REPORT INFORMATION
  Report Type: 
  Country: None (occurrence: None)
  Receive Date: 20080501
  Receipt Date: 20080501
  Transmission Date: 20081010
  Serious: Yes (Other)
  Sender: FDA-Public Use
  Company Number: None

PATIENT
  Age: 49 Year
  Sex: Female
  Weight: 61.2356 kg

DRUGS (6)
  1. ZYPREXA [Suspect]
     Indication: ANXIETY
     Dosage: 1TABLET  1 X DAILY PO
     Route: 048
     Dates: start: 20080314, end: 20080410
  2. ZYPREXA [Suspect]
     Indication: DEPRESSION
     Dosage: 1TABLET  1 X DAILY PO
     Route: 048
     Dates: start: 20080314, end: 20080410
  3. ZYPREXA [Suspect]
     Indication: DRUG HYPERSENSITIVITY
     Dosage: 1TABLET  1 X DAILY PO
     Route: 048
     Dates: start: 20080314, end: 20080410
  4. ZYPREXA [Suspect]
     Indication: ROAD TRAFFIC ACCIDENT
     Dosage: 1TABLET  1 X DAILY PO
     Route: 048
     Dates: start: 20080314, end: 20080410
  5. XANAX [Concomitant]
  6. ADDERALL 10 [Concomitant]

REACTIONS (7)
  - ADVERSE DRUG REACTION [None]
  - AGGRESSION [None]
  - AGITATION [None]
  - ANGER [None]
  - FEELING ABNORMAL [None]
  - MUSCLE SPASMS [None]
  - NECK PAIN [None]
